FAERS Safety Report 20775062 (Version 3)
Quarter: 2022Q3

REPORT INFORMATION
  Report Type: Report from Study
  Country: CO (occurrence: CO)
  Receive Date: 20220502
  Receipt Date: 20220824
  Transmission Date: 20221027
  Serious: Yes (Other)
  Sender: FDA-Public Use
  Company Number: CO-BAYER-2021-177593

PATIENT
  Sex: Male

DRUGS (6)
  1. EYLEA [Suspect]
     Active Substance: AFLIBERCEPT
     Indication: Age-related macular degeneration
     Dosage: 2 MG, ONCE LEFT EYE, SOLUTION FOR INJECTION
     Route: 031
     Dates: start: 20210405, end: 20210405
  2. EYLEA [Suspect]
     Active Substance: AFLIBERCEPT
     Dosage: 2 MG, ONCE LEFT EYE, SOLUTION FOR INJECTION
     Route: 031
     Dates: start: 20210606, end: 20210606
  3. EYLEA [Suspect]
     Active Substance: AFLIBERCEPT
     Dosage: 2 MG, ONCE LEFT EYE, SOLUTION FOR INJECTION
     Route: 031
     Dates: start: 20210707, end: 20210707
  4. EYLEA [Suspect]
     Active Substance: AFLIBERCEPT
     Dosage: 2 MG, ONCE LEFT EYE, SOLUTION FOR INJECTION
     Route: 031
     Dates: start: 20220216, end: 20220216
  5. EYLEA [Suspect]
     Active Substance: AFLIBERCEPT
     Dosage: 2 MG, ONCE LEFT EYE, SOLUTION FOR INJECTION
     Route: 031
     Dates: start: 20220406, end: 20220406
  6. EYLEA [Suspect]
     Active Substance: AFLIBERCEPT
     Dosage: 2 MG, ONCE LEFT EYE, SOLUTION FOR INJECTION
     Route: 031
     Dates: start: 20220718

REACTIONS (3)
  - Blindness [Recovering/Resolving]
  - Inappropriate schedule of product administration [Not Recovered/Not Resolved]
  - Visual impairment [Unknown]

NARRATIVE: CASE EVENT DATE: 20210405
